FAERS Safety Report 23165479 (Version 3)
Quarter: 2024Q1

REPORT INFORMATION
  Report Type: Report from Study
  Country: US (occurrence: US)
  Receive Date: 20231109
  Receipt Date: 20240109
  Transmission Date: 20240410
  Serious: Yes (Other)
  Sender: FDA-Public Use
  Company Number: US-ABBVIE-5487413

PATIENT
  Sex: Female

DRUGS (3)
  1. SKYRIZI [Suspect]
     Active Substance: RISANKIZUMAB-RZAA
     Indication: Psoriasis
     Dosage: TIME INTERVAL: TOTAL: FORM STRENGTH 150 MILLIGRAM?WEEK 0
     Route: 058
     Dates: start: 20230728, end: 20230728
  2. SKYRIZI [Suspect]
     Active Substance: RISANKIZUMAB-RZAA
     Dosage: TIME INTERVAL: TOTAL: FORM STRENGTH 150 MILLIGRAM?WEEK 4
     Route: 058
     Dates: start: 20230825, end: 20230825
  3. SKYRIZI [Suspect]
     Active Substance: RISANKIZUMAB-RZAA
     Dosage: FORM STRENGTH 150 MILLIGRAM FIRST ADMIN DATE 2023
     Route: 058
     Dates: end: 202310

REACTIONS (5)
  - Hordeolum [Recovering/Resolving]
  - Sinusitis [Unknown]
  - Psoriasis [Unknown]
  - Drug ineffective [Unknown]
  - Infection [Unknown]

NARRATIVE: CASE EVENT DATE: 20230101
